FAERS Safety Report 21394935 (Version 1)
Quarter: 2022Q3

REPORT INFORMATION
  Report Type: Report from Study
  Country: IE (occurrence: None)
  Receive Date: 20220930
  Receipt Date: 20220930
  Transmission Date: 20221026
  Serious: Yes (Hospitalization, Other)
  Sender: FDA-Public Use
  Company Number: IE-Merck Healthcare KGaA-9354049

PATIENT
  Age: 11 Year
  Sex: Male

DRUGS (4)
  1. SAIZEN [Suspect]
     Active Substance: SOMATROPIN
     Indication: Growth hormone deficiency
     Route: 058
     Dates: start: 20150909, end: 20170801
  2. SAIZEN [Suspect]
     Active Substance: SOMATROPIN
     Dosage: (5.83 MG/ML)
     Route: 058
     Dates: start: 20170801
  3. SAIZEN [Suspect]
     Active Substance: SOMATROPIN
     Route: 050
  4. CALOGEN [CALCITONIN, SALMON] [Concomitant]
     Indication: Product used for unknown indication
     Route: 050

REACTIONS (3)
  - Dialysis [Recovering/Resolving]
  - Vascular access site infection [Recovering/Resolving]
  - COVID-19 [Recovering/Resolving]

NARRATIVE: CASE EVENT DATE: 20220919
